FAERS Safety Report 8667478 (Version 2)
Quarter: 2013Q4

REPORT INFORMATION
  Report Type: Spontaneous
  Country: AU (occurrence: AU)
  Receive Date: 20120717
  Receipt Date: 20131031
  Transmission Date: 20140711
  Serious: Yes (Hospitalization)
  Sender: FDA-Public Use
  Company Number: AU-009507513-2012SP032612

PATIENT
  Age: 74 Year
  Sex: Male

DRUGS (1)
  1. ONCOTICE [Suspect]
     Indication: BLADDER CANCER
     Dosage: UNK UNK, UNKNOWN
     Route: 065

REACTIONS (3)
  - Hepatic cirrhosis [Unknown]
  - Ascites [Unknown]
  - Post transplant lymphoproliferative disorder [Unknown]
